FAERS Safety Report 10037597 (Version 1)
Quarter: 2014Q1

REPORT INFORMATION
  Report Type: Spontaneous
  Country: FR (occurrence: None)
  Receive Date: 20140324
  Receipt Date: 20140324
  Transmission Date: 20141002
  Serious: Yes (Hospitalization)
  Sender: FDA-Public Use
  Company Number: SYM-2014-18679

PATIENT
  Age: 50 Year
  Sex: Male

DRUGS (4)
  1. FLAGYL [Suspect]
     Indication: LUNG DISORDER
     Dates: start: 20140211, end: 20140216
  2. ALIMTA [Suspect]
     Indication: LUNG ADENOCARCINOMA
     Dosage: (NOT OTHERWISE SPECIFIED)
     Route: 042
     Dates: start: 20140121
  3. CISPLATINE (CISPLATIN) [Concomitant]
  4. AUGMENTIN [Concomitant]

REACTIONS (14)
  - Myoclonus [None]
  - Echolalia [None]
  - Confusional state [None]
  - Pyrexia [None]
  - Diarrhoea [None]
  - Lung disorder [None]
  - Psychomotor skills impaired [None]
  - Disorientation [None]
  - Renal failure acute [None]
  - Hyperkalaemia [None]
  - Epstein-Barr virus infection [None]
  - Infection in an immunocompromised host [None]
  - Toxicity to various agents [None]
  - Neurotoxicity [None]
